FAERS Safety Report 5113040-4 (Version None)
Quarter: 2006Q3

REPORT INFORMATION
  Report Type: 
  Country: None (occurrence: None)
  Receive Date: 20060922
  Receipt Date: 20060914
  Transmission Date: 20061208
  Serious: Yes (Other)
  Sender: FDA-Public Use
  Company Number: FR-BOEHRINGER INGELHEIM PHARMACEUTICALS, INC.-2006-DE-04951GD

PATIENT
  Sex: Male

DRUGS (2)
  1. TIPRANAVIR [Suspect]
     Indication: HIV INFECTION
  2. TRIZIVIR [Suspect]
     Indication: HIV INFECTION

REACTIONS (4)
  - DRUG RESISTANCE [None]
  - IMMUNODEFICIENCY [None]
  - MULTIPLE-DRUG RESISTANCE [None]
  - VIRAL MUTATION IDENTIFIED [None]
